FAERS Safety Report 8077004-3 (Version None)
Quarter: 2012Q1

REPORT INFORMATION
  Report Type: 
  Country: None (occurrence: None)
  Receive Date: 20120127
  Receipt Date: 20120124
  Transmission Date: 20120608
  Serious: Yes (Other)
  Sender: FDA-Public Use
  Company Number: CH-GLAXOSMITHKLINE-B0777564A

PATIENT
  Sex: Male

DRUGS (6)
  1. RADIOTHERAPY [Concomitant]
     Indication: METASTASES TO BONE
     Dates: start: 20110314, end: 20110318
  2. ATENOLOL [Concomitant]
     Indication: HYPERTENSION
     Route: 048
  3. VOTRIENT [Suspect]
     Indication: RENAL CANCER
     Dosage: 800MG PER DAY
     Route: 048
     Dates: start: 20110314, end: 20120101
  4. ZOMETA [Concomitant]
     Dates: start: 20100827
  5. NORVASC [Concomitant]
     Indication: HYPERTENSION
     Dosage: 10MG PER DAY
     Route: 048
  6. ATACAND [Concomitant]
     Indication: HYPERTENSION
     Dosage: 8MG PER DAY
     Route: 048

REACTIONS (5)
  - HYPOTHYROIDISM [None]
  - DECREASED APPETITE [None]
  - DISEASE PROGRESSION [None]
  - GENERAL PHYSICAL HEALTH DETERIORATION [None]
  - FATIGUE [None]
